FAERS Safety Report 18484187 (Version 2)
Quarter: 2020Q4

REPORT INFORMATION
  Report Type: Spontaneous
  Country: MY (occurrence: MY)
  Receive Date: 20201110
  Receipt Date: 20201201
  Transmission Date: 20210114
  Serious: Yes (Other)
  Sender: FDA-Public Use
  Company Number: MY-ACCORD-207865

PATIENT
  Age: 67 Year
  Sex: Male
  Weight: 41.5 kg

DRUGS (10)
  1. AMLODIPINE [Suspect]
     Active Substance: AMLODIPINE BESYLATE
     Indication: ESSENTIAL HYPERTENSION
     Dates: start: 20190421, end: 20190507
  2. FELODIPINE. [Interacting]
     Active Substance: FELODIPINE
     Indication: ESSENTIAL HYPERTENSION
     Dates: start: 20190507, end: 201911
  3. PRAZOSIN. [Interacting]
     Active Substance: PRAZOSIN
     Indication: ESSENTIAL HYPERTENSION
     Dates: start: 2019
  4. SPIRONOLACTONE. [Interacting]
     Active Substance: SPIRONOLACTONE
     Indication: DIURETIC THERAPY
     Dates: start: 2019
  5. PERINDOPRIL [Interacting]
     Active Substance: PERINDOPRIL
     Indication: ESSENTIAL HYPERTENSION
     Dates: start: 20190416
  6. PYRIDOXINE [Concomitant]
     Active Substance: PYRIDOXINE
     Indication: PULMONARY TUBERCULOSIS
     Dates: start: 20190408
  7. METOPROLOL. [Interacting]
     Active Substance: METOPROLOL
     Indication: ESSENTIAL HYPERTENSION
     Dates: start: 20190507, end: 20190909
  8. ENALAPRIL [Interacting]
     Active Substance: ENALAPRIL
     Indication: ESSENTIAL HYPERTENSION
     Dates: start: 20190604, end: 20191115
  9. AKURIT-4 [Interacting]
     Active Substance: ETHAMBUTOL HYDROCHLORIDE\ISONIAZID\PYRAZINAMIDE\RIFAMYCIN
     Indication: PULMONARY TUBERCULOSIS
     Dates: start: 20190408, end: 201910
  10. METHYLDOPA. [Interacting]
     Active Substance: METHYLDOPA
     Indication: ESSENTIAL HYPERTENSION
     Dates: start: 20190523, end: 20191029

REACTIONS (2)
  - Drug interaction [Unknown]
  - Hypertension [Recovered/Resolved]

NARRATIVE: CASE EVENT DATE: 2019
